FAERS Safety Report 7803788-2 (Version None)
Quarter: 2011Q4

REPORT INFORMATION
  Report Type: 
  Country: None (occurrence: None)
  Receive Date: 20111010
  Receipt Date: 20111005
  Transmission Date: 20120403
  Serious: No
  Sender: FDA-Public Use
  Company Number: US-PFIZER INC-2011238942

PATIENT

DRUGS (1)
  1. DEPO-MEDROL [Suspect]
     Indication: ROTATOR CUFF SYNDROME
     Dosage: UNK

REACTIONS (1)
  - DYSGEUSIA [None]
